FAERS Safety Report 5315572-2 (Version None)
Quarter: 2007Q2

REPORT INFORMATION
  Report Type: 
  Country: None (occurrence: None)
  Receive Date: 20070503
  Receipt Date: 20070423
  Transmission Date: 20071010
  Serious: Yes (Hospitalization)
  Sender: FDA-Public Use
  Company Number: DE-JNJFOC-20070304507

PATIENT
  Sex: Female
  Weight: 62 kg

DRUGS (4)
  1. BLINDED; INFLIXIMAB, RECOMBINANT [Suspect]
     Indication: ANKYLOSING SPONDYLITIS
     Dosage: 7KG BODY WEIGHT
     Route: 042
  2. PLACEBO [Suspect]
     Indication: ANKYLOSING SPONDYLITIS
     Dosage: 7KG BODY WEIGHT
     Route: 042
  3. LOCERYL [Concomitant]
  4. OSSOFORTIN FORTE [Concomitant]
     Indication: OSTEOPOROSIS PROPHYLAXIS
     Route: 048

REACTIONS (1)
  - TENOSYNOVITIS [None]
